FAERS Safety Report 5487474-2 (Version None)
Quarter: 2007Q4

REPORT INFORMATION
  Report Type: 
  Country: None (occurrence: None)
  Receive Date: 20071015
  Receipt Date: 20071001
  Transmission Date: 20080405
  Serious: Yes (Other)
  Sender: FDA-Public Use
  Company Number: GXKR2007AU08482

PATIENT
  Age: 74 Year
  Sex: Female

DRUGS (8)
  1. SIMVASTATIN [Suspect]
     Indication: HYPERCHOLESTEROLAEMIA
     Dosage: 10 MG; 20 MG
  2. SIMVASTATIN [Suspect]
     Indication: HYPERCHOLESTEROLAEMIA
     Dosage: 10 MG; 20 MG
  3. ACETYLSALICYLIC ACID SRT [Concomitant]
  4. LEVOTHYROXINE SODIUM [Concomitant]
  5. FUROSEMIDE [Concomitant]
  6. DILTIAZEM [Concomitant]
  7. NICORANDIL (NICORANDIL) [Concomitant]
  8. NITRATES (NITRATES) [Concomitant]

REACTIONS (1)
  - INTERSTITIAL LUNG DISEASE [None]
